FAERS Safety Report 5280006-3 (Version None)
Quarter: 2007Q1

REPORT INFORMATION
  Report Type: 
  Country: None (occurrence: None)
  Receive Date: 20070329
  Receipt Date: 20070316
  Transmission Date: 20070707
  Serious: Yes (Other)
  Sender: FDA-Public Use
  Company Number: PHBS2007CH04671

PATIENT
  Age: 64 Year
  Sex: Male

DRUGS (3)
  1. TOFRANIL [Suspect]
     Indication: BIPOLAR DISORDER
     Dosage: 150 MG/D
     Route: 065
     Dates: start: 20060905
  2. DEPAKENE [Suspect]
     Indication: BIPOLAR DISORDER
     Dosage: 1500 MG/D
     Route: 065
     Dates: start: 20060830
  3. LAMICTAL [Concomitant]
     Indication: BIPOLAR DISORDER
     Dosage: 75 MG/D
     Route: 065
     Dates: start: 20070102

REACTIONS (6)
  - ANTIDEPRESSANT DRUG LEVEL INCREASED [None]
  - DISTURBANCE IN ATTENTION [None]
  - DRUG INTERACTION [None]
  - DRUG TOXICITY [None]
  - FALL [None]
  - TREMOR [None]
